FAERS Safety Report 17882423 (Version 3)
Quarter: 2020Q3

REPORT INFORMATION
  Report Type: Report from Study
  Country: JP (occurrence: JP)
  Receive Date: 20200610
  Receipt Date: 20200716
  Transmission Date: 20201103
  Serious: Yes (Other)
  Sender: FDA-Public Use
  Company Number: JP-PFIZER INC-2020224695

PATIENT
  Age: 77 Year

DRUGS (2)
  1. ENCORAFENIB [Suspect]
     Active Substance: ENCORAFENIB
     Indication: MALIGNANT MELANOMA
     Dosage: 450 MG, DAILY
     Route: 048
     Dates: start: 20200604, end: 20200605
  2. BINIMETINIB [Suspect]
     Active Substance: BINIMETINIB
     Indication: MALIGNANT MELANOMA
     Dosage: 45 MG, DAILY
     Route: 048
     Dates: start: 20200604, end: 20200605

REACTIONS (2)
  - Retinal detachment [Unknown]
  - Macular oedema [Unknown]

NARRATIVE: CASE EVENT DATE: 20200605
